FAERS Safety Report 18340433 (Version 6)
Quarter: 2021Q1

REPORT INFORMATION
  Report Type: Spontaneous
  Country: US (occurrence: US)
  Receive Date: 20201002
  Receipt Date: 20210218
  Transmission Date: 20210419
  Serious: Yes (Other)
  Sender: FDA-Public Use
  Company Number: US-PFIZER INC-2020379792

PATIENT
  Age: 73 Year
  Sex: Female
  Weight: 62.59 kg

DRUGS (1)
  1. LYRICA [Suspect]
     Active Substance: PREGABALIN
     Dosage: 25 MG, 3X/DAY

REACTIONS (9)
  - Back pain [Unknown]
  - Self-injurious ideation [Unknown]
  - Deafness [Unknown]
  - Stress [Unknown]
  - Amnesia [Unknown]
  - Confusional state [Unknown]
  - Malaise [Unknown]
  - Nervousness [Unknown]
  - Pain in extremity [Unknown]
